FAERS Safety Report 24046272 (Version 1)
Quarter: 2024Q3

REPORT INFORMATION
  Report Type: Spontaneous
  Country: CA (occurrence: CA)
  Receive Date: 20240703
  Receipt Date: 20240703
  Transmission Date: 20241016
  Serious: Yes (Hospitalization)
  Sender: PFIZER
  Company Number: CA-PFIZER INC-202400204426

PATIENT
  Age: 3 Year
  Sex: Female
  Weight: 11 kg

DRUGS (10)
  1. VINCRISTINE SULFATE [Suspect]
     Active Substance: VINCRISTINE SULFATE
     Indication: Clear cell sarcoma of the kidney
     Dosage: 1 MG
     Route: 042
  2. ADRIAMYCIN [Suspect]
     Active Substance: DOXORUBICIN HYDROCHLORIDE
     Indication: Clear cell sarcoma of the kidney
     Dosage: 25 MG, SINGLE
     Route: 042
  3. ETOPOSIDE [Suspect]
     Active Substance: ETOPOSIDE
     Indication: Clear cell sarcoma of the kidney
     Dosage: 0 MG, SINGLE
     Route: 042
  4. CYCLOPHOSPHAMIDE [Suspect]
     Active Substance: CYCLOPHOSPHAMIDE
     Indication: Clear cell sarcoma of the kidney
     Dosage: 240 MG, SINGLE
     Route: 042
  5. ACETAMINOPHEN [Concomitant]
     Active Substance: ACETAMINOPHEN
     Dosage: UNK
  6. AMLODIPINE [Concomitant]
     Active Substance: AMLODIPINE BESYLATE
     Dosage: UNK
     Route: 065
  7. GRANISETRON [Concomitant]
     Active Substance: GRANISETRON
     Dosage: UNK
  8. OLANZAPINE [Concomitant]
     Active Substance: OLANZAPINE
     Dosage: UNK
  9. POLYETHYLENE GLYCOL 3350 [Concomitant]
     Active Substance: POLYETHYLENE GLYCOL 3350
     Dosage: UNK
  10. SULFAMETHOXAZOLE\TRIMETHOPRIM [Concomitant]
     Active Substance: SULFAMETHOXAZOLE\TRIMETHOPRIM
     Dosage: UNK

REACTIONS (3)
  - Febrile neutropenia [Recovering/Resolving]
  - Off label use [Unknown]
  - Off label use [Unknown]
